FAERS Safety Report 11700183 (Version 1)
Quarter: 2015Q4

REPORT INFORMATION
  Report Type: Spontaneous
  Country: US (occurrence: US)
  Receive Date: 20151105
  Receipt Date: 20151105
  Transmission Date: 20160304
  Serious: Yes (Other)
  Sender: FDA-Public Use
  Company Number: US-SA-2015SA170731

PATIENT
  Age: 66 Year
  Sex: Female

DRUGS (2)
  1. ALLEGRA [Suspect]
     Active Substance: FEXOFENADINE HYDROCHLORIDE
     Indication: RUBBER SENSITIVITY
     Dosage: START DATE: MORE THAN 10 YEARS AGO
     Route: 048
  2. ALLEGRA [Suspect]
     Active Substance: FEXOFENADINE HYDROCHLORIDE
     Indication: SEASONAL ALLERGY
     Dosage: START DATE: MORE THAN 10 YEARS AGO
     Route: 048

REACTIONS (1)
  - Asthma [Unknown]
